FAERS Safety Report 21464250 (Version 3)
Quarter: 2022Q4

REPORT INFORMATION
  Report Type: Spontaneous
  Country: NL (occurrence: NL)
  Receive Date: 20221017
  Receipt Date: 20221028
  Transmission Date: 20230113
  Serious: Yes (Other)
  Sender: FDA-Public Use
  Company Number: NL-LRB-00831374

PATIENT
  Sex: Female
  Weight: 64 kg

DRUGS (4)
  1. LEUPROLIDE ACETATE [Suspect]
     Active Substance: LEUPROLIDE ACETATE
     Indication: Adenomyosis
     Dosage: 1 DOSAGE FORM, MONTHLY
     Route: 065
     Dates: start: 20220429
  2. LEUPROLIDE ACETATE [Suspect]
     Active Substance: LEUPROLIDE ACETATE
     Indication: Menstrual cycle management
     Route: 005
     Dates: start: 2022
  3. LYNESTRENOL [Suspect]
     Active Substance: LYNESTRENOL
     Indication: Adenomyosis
     Dosage: 5 MILLIGRAM, QD
     Route: 065
     Dates: start: 20220802, end: 20220924
  4. LYNESTRENOL [Suspect]
     Active Substance: LYNESTRENOL
     Indication: Adenomyosis
     Dosage: UNK
     Route: 065

REACTIONS (8)
  - Suicidal ideation [Not Recovered/Not Resolved]
  - Feeling of despair [Not Recovered/Not Resolved]
  - Mood altered [Not Recovered/Not Resolved]
  - Anger [Not Recovered/Not Resolved]
  - Fatigue [Not Recovered/Not Resolved]
  - Irritability [Not Recovered/Not Resolved]
  - Insomnia [Not Recovered/Not Resolved]
  - Depressed mood [Not Recovered/Not Resolved]

NARRATIVE: CASE EVENT DATE: 20220101
